FAERS Safety Report 7537377-4 (Version None)
Quarter: 2011Q2

REPORT INFORMATION
  Report Type: 
  Country: None (occurrence: None)
  Receive Date: 20110603
  Receipt Date: 20110518
  Transmission Date: 20111010
  Serious: Yes (Death, Life-Threatening, Hospitalization)
  Sender: FDA-Public Use
  Company Number: 2011MA006072

PATIENT
  Age: 67 Year
  Sex: Female

DRUGS (2)
  1. LORAZEPAM [Suspect]
     Indication: SEDATION
  2. TICARCILLIN-CLAVULANATE [Concomitant]

REACTIONS (3)
  - METABOLIC ACIDOSIS [None]
  - REACTION TO DRUG EXCIPIENTS [None]
  - HAEMODIALYSIS [None]
